FAERS Safety Report 4582871-1 (Version None)
Quarter: 2005Q1

REPORT INFORMATION
  Report Type: 
  Country: None (occurrence: None)
  Receive Date: 20050215
  Receipt Date: 20041222
  Transmission Date: 20050727
  Serious: Yes (Other)
  Sender: FDA-Public Use
  Company Number: PHBS2004JP17264

PATIENT
  Age: 4 Year
  Sex: Male
  Weight: 21 kg

DRUGS (9)
  1. L-PAM [Suspect]
     Indication: ACUTE LYMPHOCYTIC LEUKAEMIA
     Dosage: 90 MG/M2/D
     Route: 042
     Dates: start: 20030114, end: 20030115
  2. PROGRAF [Suspect]
     Indication: PROPHYLAXIS AGAINST TRANSPLANT REJECTION
     Dosage: 0.45 MG/D
     Route: 042
  3. METHOTREXATE [Suspect]
     Indication: PROPHYLAXIS AGAINST TRANSPLANT REJECTION
     Dosage: 15 MG/DAY
     Route: 042
     Dates: start: 20030118, end: 20030118
  4. METHOTREXATE [Suspect]
     Dosage: 10 MG/DAY
     Route: 042
     Dates: start: 20030120, end: 20030120
  5. METHOTREXATE [Suspect]
     Dosage: 10 MG/DAY
     Route: 042
     Dates: start: 20030123, end: 20030123
  6. METHOTREXATE [Suspect]
     Dosage: 10 MG/DAY
     Route: 042
     Dates: start: 20030128, end: 20030128
  7. GLEEVEC [Suspect]
     Indication: ACUTE LYMPHOCYTIC LEUKAEMIA
     Dosage: 400 MG/M2/DAY
     Route: 048
     Dates: start: 20021210, end: 20030107
  8. CYLOCIDE [Suspect]
     Indication: ACUTE LYMPHOCYTIC LEUKAEMIA
     Dosage: 10 MG/M2/D
     Route: 042
     Dates: start: 20021210, end: 20021223
  9. CYLOCIDE [Suspect]
     Dosage: 4000 MG/M2/D
     Route: 042
     Dates: start: 20030111, end: 20030113

REACTIONS (7)
  - ABDOMINAL PAIN [None]
  - BONE MARROW DISORDER [None]
  - BONE MARROW TRANSPLANT [None]
  - CHROMOSOME ANALYSIS ABNORMAL [None]
  - HEPATOMEGALY [None]
  - VENOOCCLUSIVE DISEASE [None]
  - VENOOCCLUSIVE LIVER DISEASE [None]
